FAERS Safety Report 7050454-X (Version None)
Quarter: 2010Q4

REPORT INFORMATION
  Report Type: 
  Country: None (occurrence: None)
  Receive Date: 20101018
  Receipt Date: 20100928
  Transmission Date: 20110411
  Serious: Yes (Other)
  Sender: FDA-Public Use
  Company Number: PHHY2010US64224

PATIENT
  Age: 47 Year
  Sex: Male
  Weight: 72.608 kg

DRUGS (3)
  1. LOTREL [Suspect]
     Indication: HYPERTENSION
     Dosage: 10 MG DAILY
     Route: 048
  2. LIPITOR [Suspect]
     Indication: HYPERCHOLESTEROLAEMIA
     Dosage: 40 MG, ONE TABLET AT BEDTIME
     Dates: start: 20100421
  3. LIPITOR [Suspect]
     Dosage: UNK
     Dates: start: 20100101, end: 20100721

REACTIONS (5)
  - EYE DISORDER [None]
  - EYE PAIN [None]
  - EYE PRURITUS [None]
  - OPTIC NEURITIS [None]
  - VISION BLURRED [None]
